FAERS Safety Report 9575824 (Version 1)
Quarter: 2013Q4

REPORT INFORMATION
  Report Type: Spontaneous
  Country: US (occurrence: US)
  Receive Date: 20131001
  Receipt Date: 20131001
  Transmission Date: 20140711
  Serious: No
  Sender: FDA-Public Use
  Company Number: US-AMGEN-USASP2013000272

PATIENT
  Age: 40 Year
  Sex: Female

DRUGS (3)
  1. ENBREL [Suspect]
     Indication: PSORIASIS
     Dosage: 50 MG, UNK
     Route: 058
     Dates: end: 201212
  2. ZYRTEC [Concomitant]
     Dosage: UNK
  3. SUDAFED                            /00076302/ [Concomitant]
     Dosage: UNK

REACTIONS (1)
  - Psoriasis [Unknown]
